FAERS Safety Report 21363510 (Version 2)
Quarter: 2022Q3

REPORT INFORMATION
  Report Type: Other
  Country: FR (occurrence: FR)
  Receive Date: 20220922
  Receipt Date: 20220923
  Transmission Date: 20221027
  Serious: Yes (Other)
  Sender: FDA-Public Use
  Company Number: None

PATIENT

DRUGS (2)
  1. TRAMADOL [Suspect]
     Active Substance: TRAMADOL
     Indication: Pain
     Dosage: UNK
     Route: 048
     Dates: start: 20220715, end: 20220715
  2. HALDOL [Suspect]
     Active Substance: HALOPERIDOL
     Indication: Product administration error
     Dosage: 2 DOSAGE FORM
     Route: 048
     Dates: start: 20220715, end: 20220715

REACTIONS (3)
  - Product administration error [Unknown]
  - Dyskinesia [Recovered/Resolved]
  - Salivary hypersecretion [Recovered/Resolved]

NARRATIVE: CASE EVENT DATE: 20220715
